FAERS Safety Report 23334701 (Version 6)
Quarter: 2025Q4

REPORT INFORMATION
  Report Type: Other
  Country: US (occurrence: US)
  Receive Date: 20231224
  Receipt Date: 20251124
  Transmission Date: 20260117
  Serious: No
  Sender: TRAVERE THERAPEUTICS
  Company Number: US-TRAVERE-2023TVT00806

PATIENT
  Age: 46 Year
  Sex: Male
  Weight: 91.4 kg

DRUGS (9)
  1. FILSPARI [Suspect]
     Active Substance: SPARSENTAN
     Indication: IgA nephropathy
     Dosage: 400 MG
     Route: 048
     Dates: start: 20231024
  2. FENOFIBRATE [Concomitant]
     Active Substance: FENOFIBRATE
  3. PRAVASTATIN SODIUM [Concomitant]
     Active Substance: PRAVASTATIN SODIUM
  4. HYDROCHLOROTHIAZIDE [Concomitant]
     Active Substance: HYDROCHLOROTHIAZIDE
  5. AMLODIPINE BESYLATE [Concomitant]
     Active Substance: AMLODIPINE BESYLATE
  6. FARXIGA [Concomitant]
     Active Substance: DAPAGLIFLOZIN PROPANEDIOL
  7. CARVEDILOL [Concomitant]
     Active Substance: CARVEDILOL
  8. LITHIUM [Concomitant]
     Active Substance: LITHIUM
  9. PROZAC [Concomitant]
     Active Substance: FLUOXETINE HYDROCHLORIDE

REACTIONS (7)
  - Hepatic enzyme increased [Recovered/Resolved]
  - Proteinuria [Unknown]
  - Adverse reaction [Unknown]
  - Glomerular filtration rate decreased [None]
  - Hypotension [Unknown]
  - Abscess limb [Unknown]
  - Gout [Unknown]

NARRATIVE: CASE EVENT DATE: 20231218
